FAERS Safety Report 11767085 (Version 1)
Quarter: 2015Q4

REPORT INFORMATION
  Report Type: Spontaneous
  Country: US (occurrence: US)
  Receive Date: 20151123
  Receipt Date: 20151123
  Transmission Date: 20160304
  Serious: Yes (Other)
  Sender: FDA-Public Use
  Company Number: US-WATSON-2015-25157

PATIENT
  Sex: Male

DRUGS (2)
  1. DEPO TESTOSTERONE [Suspect]
     Active Substance: TESTOSTERONE
     Indication: ANDROGEN REPLACEMENT THERAPY
     Dosage: UNK
     Route: 065
     Dates: start: 201007, end: 201201
  2. ANDRODERM [Suspect]
     Active Substance: TESTOSTERONE
     Indication: ANDROGEN REPLACEMENT THERAPY
     Dosage: UNK
     Route: 065
     Dates: start: 201007, end: 201201

REACTIONS (4)
  - Coronary artery embolism [Unknown]
  - Sudden cardiac death [Unknown]
  - Myocardial infarction [Unknown]
  - Pulmonary embolism [Unknown]

NARRATIVE: CASE EVENT DATE: 201110
